FAERS Safety Report 9783174 (Version 2)
Quarter: 2013Q4

REPORT INFORMATION
  Report Type: Spontaneous
  Country: AU (occurrence: None)
  Receive Date: 20131223
  Receipt Date: 20131227
  Transmission Date: 20140711
  Serious: Yes (Other)
  Sender: FDA-Public Use
  Company Number: 2013AP010577

PATIENT
  Age: 42 Year
  Sex: Female

DRUGS (1)
  1. AMOXICILLIN AND CLAVUDLANATE POTASSIUM TABLETS (CLAVULANATE POTASSIUM/AMOXICILLIN TRIHYDATE) [Suspect]
     Indication: INFLAMMATION
     Dosage: 875/125MG
     Route: 048

REACTIONS (3)
  - Rash pruritic [None]
  - Urticaria [None]
  - Hypersensitivity [None]
